FAERS Safety Report 5040671-2 (Version None)
Quarter: 2006Q2

REPORT INFORMATION
  Report Type: 
  Country: None (occurrence: None)
  Receive Date: 20060629
  Receipt Date: 20060629
  Transmission Date: 20061013
  Serious: Yes (Hospitalization)
  Sender: FDA-Public Use
  Company Number: None

PATIENT
  Age: 86 Year
  Sex: Male
  Weight: 85 kg

DRUGS (1)
  1. FOSINOPRIL SODIUM [Suspect]
     Dosage: 40 MG PO DAILY
     Route: 048
     Dates: start: 19980501

REACTIONS (4)
  - DROOLING [None]
  - FACE OEDEMA [None]
  - RASH ERYTHEMATOUS [None]
  - SWELLING FACE [None]
